FAERS Safety Report 12173455 (Version 2)
Quarter: 2016Q1

REPORT INFORMATION
  Report Type: Spontaneous
  Country: US (occurrence: US)
  Receive Date: 20160311
  Receipt Date: 20160317
  Transmission Date: 20160526
  Serious: No
  Sender: FDA-Public Use
  Company Number: US-GALDERMA-US15005738

PATIENT
  Age: 43 Year
  Sex: Male

DRUGS (6)
  1. MYFORTIC (MYCOPHENOLIC ACID) [Concomitant]
     Indication: RENAL TRANSPLANT
     Route: 048
     Dates: start: 200508
  2. NEUTROGENA SPF [Concomitant]
     Indication: PROPHYLAXIS AGAINST SOLAR RADIATION
     Route: 061
  3. TRI-LUMA [Suspect]
     Active Substance: FLUOCINOLONE ACETONIDE\HYDROQUINONE\TRETINOIN
     Indication: PIGMENTATION DISORDER
     Route: 061
     Dates: start: 20150608, end: 20150702
  4. GENGRAF (CYCLOSPORINE) [Concomitant]
     Indication: RENAL TRANSPLANT
     Route: 048
     Dates: start: 200508
  5. LISINOPRIL. [Concomitant]
     Active Substance: LISINOPRIL
     Indication: HYPERTENSION
     Route: 048
     Dates: start: 200508
  6. FISH OIL [Concomitant]
     Active Substance: FISH OIL
     Dates: start: 201506

REACTIONS (4)
  - Rash erythematous [Recovered/Resolved]
  - Drug ineffective [Not Recovered/Not Resolved]
  - Pain of skin [Recovered/Resolved]
  - Erythema [Recovered/Resolved]

NARRATIVE: CASE EVENT DATE: 20150608
